FAERS Safety Report 21651942 (Version 1)
Quarter: 2022Q4

REPORT INFORMATION
  Report Type: Spontaneous
  Country: US (occurrence: None)
  Receive Date: 20221125
  Receipt Date: 20221125
  Transmission Date: 20230113
  Serious: No
  Sender: FDA-Public Use
  Company Number: None

PATIENT
  Age: 73 Year
  Sex: Female
  Weight: 70.2 kg

DRUGS (10)
  1. EVENITY [Suspect]
     Active Substance: ROMOSOZUMAB-AQQG
     Indication: Osteoporosis
     Dosage: OTHER FREQUENCY : MONTHLY;?OTHER ROUTE : INJECTION IN EACH ARM;?
     Route: 050
     Dates: start: 20221123
  2. SYNTHROID [Concomitant]
     Active Substance: LEVOTHYROXINE SODIUM
  3. NEXLETOL [Concomitant]
     Active Substance: BEMPEDOIC ACID
  4. LOW DOSE ASPIRIN [Concomitant]
     Active Substance: ASPIRIN
  5. AMITIZA [Concomitant]
     Active Substance: LUBIPROSTONE
  6. VIT [Concomitant]
  7. C [Concomitant]
  8. VITAMIN D NOS [Concomitant]
     Active Substance: VITAMIN D NOS
  9. MAGNESIUM [Concomitant]
     Active Substance: MAGNESIUM
  10. STOOL SOFTENER (DOCUSATE) [Concomitant]
     Active Substance: DOCUSATE

REACTIONS (3)
  - Dizziness [None]
  - Gait inability [None]
  - Balance disorder [None]

NARRATIVE: CASE EVENT DATE: 20221124
